FAERS Safety Report 24004869 (Version 1)
Quarter: 2024Q2

REPORT INFORMATION
  Report Type: Report from Study
  Country: KR (occurrence: KR)
  Receive Date: 20240624
  Receipt Date: 20240624
  Transmission Date: 20240716
  Serious: Yes (Other)
  Sender: FDA-Public Use
  Company Number: KR-002147023-NVSC2024KR119339

PATIENT
  Age: 59 Year
  Sex: Female

DRUGS (16)
  1. KISQALI [Suspect]
     Active Substance: RIBOCICLIB
     Indication: Hormone receptor positive HER2 negative breast cancer
     Dosage: 600 MG, QD
     Route: 048
     Dates: start: 20220127, end: 20220216
  2. KISQALI [Suspect]
     Active Substance: RIBOCICLIB
     Dosage: 600 MG, QD
     Route: 048
     Dates: start: 20220224, end: 20220316
  3. KISQALI [Suspect]
     Active Substance: RIBOCICLIB
     Dosage: 600 MG, QD
     Route: 048
     Dates: start: 20220324, end: 20220413
  4. KISQALI [Suspect]
     Active Substance: RIBOCICLIB
     Dosage: 600 MG, QD
     Route: 048
     Dates: start: 20220421, end: 20220511
  5. KISQALI [Suspect]
     Active Substance: RIBOCICLIB
     Dosage: 600 MG, QD
     Route: 048
     Dates: start: 20220519, end: 20220608
  6. KISQALI [Suspect]
     Active Substance: RIBOCICLIB
     Dosage: 600 MG, QD
     Route: 048
     Dates: start: 20220616, end: 20220706
  7. KISQALI [Suspect]
     Active Substance: RIBOCICLIB
     Dosage: 600 MG, QD
     Route: 048
     Dates: start: 20220714
  8. LENARA [Concomitant]
     Indication: Breast cancer
     Dosage: 2.5 MG, QD
     Route: 048
     Dates: start: 20220127
  9. XGEVA [Concomitant]
     Active Substance: DENOSUMAB
     Indication: Metastases to bone
     Dosage: 120 MG, QD
     Route: 058
     Dates: start: 20220127
  10. XGEVA [Concomitant]
     Active Substance: DENOSUMAB
     Dosage: 120 MG, QD
     Route: 048
     Dates: start: 20220224, end: 20220224
  11. XGEVA [Concomitant]
     Active Substance: DENOSUMAB
     Dosage: 120 MG, QD
     Route: 048
     Dates: start: 20220324, end: 20220324
  12. XGEVA [Concomitant]
     Active Substance: DENOSUMAB
     Dosage: 120 MG, QD
     Route: 048
     Dates: start: 20220421, end: 20220421
  13. XGEVA [Concomitant]
     Active Substance: DENOSUMAB
     Dosage: 120 MG, QD
     Route: 048
     Dates: start: 20220519, end: 20220519
  14. XGEVA [Concomitant]
     Active Substance: DENOSUMAB
     Dosage: 120 MG, QD
     Route: 048
     Dates: start: 20220616, end: 20220616
  15. XGEVA [Concomitant]
     Active Substance: DENOSUMAB
     Dosage: 120 MG, QD
     Route: 048
     Dates: start: 20220714, end: 20220714
  16. ATORVASTATIN [Concomitant]
     Active Substance: ATORVASTATIN
     Indication: Hyperlipidaemia
     Dosage: 20 MG, QD
     Route: 048
     Dates: start: 2012

REACTIONS (2)
  - Neutropenia [Recovered/Resolved]
  - Polyneuropathy in malignant disease [Recovered/Resolved]

NARRATIVE: CASE EVENT DATE: 20220224
